FAERS Safety Report 24392500 (Version 1)
Quarter: 2024Q4

REPORT INFORMATION
  Report Type: Spontaneous
  Country: US (occurrence: None)
  Receive Date: 20241003
  Receipt Date: 20241003
  Transmission Date: 20250114
  Serious: Yes (Death)
  Sender: Public
  Company Number: None

PATIENT
  Sex: Female

DRUGS (5)
  1. MYCOPHENOLIC ACID [Suspect]
     Active Substance: MYCOPHENOLIC ACID
     Dates: start: 20240409
  2. TACROLIMUS [Suspect]
     Active Substance: TACROLIMUS
     Dates: start: 20240409
  3. valgangciclovir 450mg [Concomitant]
     Dates: start: 20240509
  4. PREDNISONE [Concomitant]
     Active Substance: PREDNISONE
     Dates: start: 20240509
  5. labetalol 200mg [Concomitant]
     Dates: start: 20240509

REACTIONS (1)
  - Death [None]
